FAERS Safety Report 16777451 (Version 1)
Quarter: 2019Q3

REPORT INFORMATION
  Report Type: Spontaneous
  Country: CA (occurrence: CA)
  Receive Date: 20190905
  Receipt Date: 20190905
  Transmission Date: 20191005
  Serious: Yes (Death)
  Sender: FDA-Public Use
  Company Number: CA-GILEAD-2019-0426627

PATIENT
  Age: 82 Year
  Sex: Female
  Weight: 50 kg

DRUGS (13)
  1. RAMIPRIL. [Concomitant]
     Active Substance: RAMIPRIL
  2. STEMETIL [PROCHLORPERAZINE] [Concomitant]
  3. PERIACTIN [Concomitant]
     Active Substance: CYPROHEPTADINE HYDROCHLORIDE
  4. METFORMIN [Concomitant]
     Active Substance: METFORMIN HYDROCHLORIDE
  5. QUETIAPINE. [Concomitant]
     Active Substance: QUETIAPINE
  6. DORZOLAMIDE/TIMOLOL [DORZOLAMIDE;TIMOLOL MALEATE] [Concomitant]
  7. RIVAROXABAN [Concomitant]
     Active Substance: RIVAROXABAN
  8. ZYDELIG [Suspect]
     Active Substance: IDELALISIB
     Indication: NON-HODGKIN^S LYMPHOMA
     Dosage: 150 MG, BID
     Route: 048
  9. ATASOL [PARACETAMOL] [Concomitant]
  10. CRESTOR [Concomitant]
     Active Substance: ROSUVASTATIN CALCIUM
  11. PANTOLOC [PANTOPRAZOLE] [Concomitant]
     Active Substance: PANTOPRAZOLE SODIUM
  12. LOPERAMIDE [Concomitant]
     Active Substance: LOPERAMIDE
  13. BACTRIM [Concomitant]
     Active Substance: SULFAMETHOXAZOLE\TRIMETHOPRIM

REACTIONS (3)
  - Nausea [Fatal]
  - Vomiting [Fatal]
  - Colitis [Fatal]
